FAERS Safety Report 7905973-8 (Version None)
Quarter: 2011Q4

REPORT INFORMATION
  Report Type: 
  Country: None (occurrence: None)
  Receive Date: 20111110
  Receipt Date: 20111102
  Transmission Date: 20120403
  Serious: Yes (Other)
  Sender: FDA-Public Use
  Company Number: US-PURDUE-USA-2011-0076231

PATIENT
  Age: 49 Year
  Sex: Female
  Weight: 60.771 kg

DRUGS (2)
  1. BUTRANS [Suspect]
     Indication: PAIN
     Dosage: 5 MCG/HR, DAILY
     Route: 062
  2. FLEXERIL [Concomitant]
     Indication: PRODUCT USED FOR UNKNOWN INDICATION

REACTIONS (3)
  - DYSPNOEA [None]
  - UNEVALUABLE EVENT [None]
  - SLEEP APNOEA SYNDROME [None]
